FAERS Safety Report 4745046-9 (Version None)
Quarter: 2005Q3

REPORT INFORMATION
  Report Type: 
  Country: None (occurrence: None)
  Receive Date: 20050812
  Receipt Date: 20050804
  Transmission Date: 20060218
  Serious: Yes (Death)
  Sender: FDA-Public Use
  Company Number: 2005106616

PATIENT
  Age: 97 Year
  Sex: Male

DRUGS (3)
  1. FLUCONAZOLE [Suspect]
     Indication: ILL-DEFINED DISORDER
     Dosage: 100 MG (INTERVAL: EVERY DAY), INTRAVENOUS
     Route: 042
     Dates: start: 20050609, end: 20050614
  2. AMOXICILLIN [Suspect]
     Indication: ILL-DEFINED DISORDER
     Dosage: INTRAVENOUS
     Route: 042
     Dates: start: 20050605
  3. CIPROFLOXACIN HCL [Suspect]
     Indication: ILL-DEFINED DISORDER
     Dosage: 400 MG (TWICE DAILY)
     Dates: start: 20050605, end: 20050614

REACTIONS (1)
  - HAEMOLYTIC ANAEMIA [None]
